FAERS Safety Report 13179236 (Version 1)
Quarter: 2017Q1

REPORT INFORMATION
  Report Type: Spontaneous
  Country: US (occurrence: US)
  Receive Date: 20170202
  Receipt Date: 20170202
  Transmission Date: 20170428
  Serious: No
  Sender: FDA-Public Use
  Company Number: US-MYLANLABS-2016M1008895

PATIENT
  Age: 56 Year
  Sex: Male
  Weight: 93.1 kg

DRUGS (10)
  1. ACETAMINOPHEN. [Concomitant]
     Active Substance: ACETAMINOPHEN
     Dosage: 650 MG, UP TO FOUR TIMES A DAY
     Route: 048
  2. PRAVASTATIN. [Concomitant]
     Active Substance: PRAVASTATIN
     Dosage: 80 MG, HS
     Route: 048
  3. CLOPIDOGREL [Concomitant]
     Active Substance: CLOPIDOGREL BISULFATE
     Dosage: 75 MG, QD
     Route: 048
  4. FONDAPARINUX MYLAN [Suspect]
     Active Substance: FONDAPARINUX
     Indication: PROPHYLAXIS
  5. AMLODIPINE [Concomitant]
     Active Substance: AMLODIPINE BESYLATE
     Dosage: 10 MG, QD
     Route: 048
  6. FONDAPARINUX MYLAN [Suspect]
     Active Substance: FONDAPARINUX
     Indication: ANTIPHOSPHOLIPID SYNDROME
  7. GABAPENTIN. [Concomitant]
     Active Substance: GABAPENTIN
     Dosage: 300 MG, TID
     Route: 048
  8. LEVETIRACETAM. [Concomitant]
     Active Substance: LEVETIRACETAM
     Dosage: 1000 MG, BID
     Route: 048
  9. FONDAPARINUX MYLAN [Suspect]
     Active Substance: FONDAPARINUX
     Indication: VASCULAR OPERATION
  10. FONDAPARINUX MYLAN [Suspect]
     Active Substance: FONDAPARINUX
     Indication: ARTERIAL THROMBOSIS
     Dosage: 7.5 MG, QD
     Route: 058
     Dates: start: 201509

REACTIONS (1)
  - Pain in extremity [Not Recovered/Not Resolved]

NARRATIVE: CASE EVENT DATE: 20150930
